FAERS Safety Report 15751042 (Version 1)
Quarter: 2018Q4

REPORT INFORMATION
  Report Type: Spontaneous
  Country: US (occurrence: US)
  Receive Date: 20181221
  Receipt Date: 20181221
  Transmission Date: 20190205
  Serious: No
  Sender: FDA-Public Use
  Company Number: US-THERAPEUTICSMD-2018TMD00323

PATIENT
  Age: 66 Year
  Sex: Female
  Weight: 82.54 kg

DRUGS (10)
  1. IMVEXXY [Suspect]
     Active Substance: ESTRADIOL
     Indication: DYSPAREUNIA
  2. LISINOPRIL. [Concomitant]
     Active Substance: LISINOPRIL
  3. VALIUM [Concomitant]
     Active Substance: DIAZEPAM
     Dosage: UNK
  4. POTASSIUM CHLORIDE. [Concomitant]
     Active Substance: POTASSIUM CHLORIDE
     Dosage: 10 UNK, 1X/DAY
  5. IMVEXXY [Suspect]
     Active Substance: ESTRADIOL
     Indication: ATROPHIC VULVOVAGINITIS
     Dosage: 10 ?G, 2X/WEEK BEFORE BED
     Route: 067
     Dates: start: 20180710
  6. PROPRANOLOL [Concomitant]
     Active Substance: PROPRANOLOL HYDROCHLORIDE
     Dosage: 40 MG, 1X/DAY IN THE MORNING
  7. IMVEXXY [Suspect]
     Active Substance: ESTRADIOL
     Indication: VAGINAL CYST
  8. PROPRANOLOL [Concomitant]
     Active Substance: PROPRANOLOL HYDROCHLORIDE
     Dosage: 20 MG, 1X/DAY AT DINNERTIME
  9. WELLBUTRIN [Concomitant]
     Active Substance: BUPROPION HYDROCHLORIDE
     Dosage: 100 MG, 2X/DAY IN THE MORNING
  10. LEVOTHYROXINE. [Concomitant]
     Active Substance: LEVOTHYROXINE

REACTIONS (4)
  - Hair growth abnormal [Not Recovered/Not Resolved]
  - Acne [Not Recovered/Not Resolved]
  - Off label use [Recovered/Resolved]
  - Product dose omission [Unknown]

NARRATIVE: CASE EVENT DATE: 2018
